FAERS Safety Report 4845064-6 (Version None)
Quarter: 2005Q4

REPORT INFORMATION
  Report Type: 
  Country: None (occurrence: None)
  Receive Date: 20051202
  Receipt Date: 20051202
  Transmission Date: 20060501
  Serious: Yes (Life-Threatening, Hospitalization)
  Sender: FDA-Public Use
  Company Number: None

PATIENT
  Sex: Male
  Weight: 136.0791 kg

DRUGS (9)
  1. TOPIRAMATE [Suspect]
     Indication: ANXIETY
     Dosage: 25 MG AT BEDTIME
  2. GINKGO BILOBA [Suspect]
     Indication: ANTICOAGULANT THERAPY
     Dosage: PER LABEL
  3. GINKGO BILOBA [Suspect]
     Indication: BLOOD PRESSURE
     Dosage: PER LABEL
  4. ASCORBIC ACID [Concomitant]
  5. VITAMIN E [Concomitant]
  6. DHA [Concomitant]
  7. OMEGA OIL [Concomitant]
  8. COQ10 [Concomitant]
  9. CAYENNE PEPPER [Concomitant]

REACTIONS (13)
  - ANGINA PECTORIS [None]
  - ANXIETY DISORDER [None]
  - ASTHENIA [None]
  - CARDIAC DISORDER [None]
  - CHEST DISCOMFORT [None]
  - DIZZINESS [None]
  - DRUG INTERACTION [None]
  - DYSPHONIA [None]
  - DYSPNOEA [None]
  - HEART RATE IRREGULAR [None]
  - MYOCARDIAL ISCHAEMIA [None]
  - PANIC ATTACK [None]
  - SHOULDER PAIN [None]
